FAERS Safety Report 8793622 (Version 2)
Quarter: 2013Q1

REPORT INFORMATION
  Report Type: Spontaneous
  Country: FR (occurrence: FR)
  Receive Date: 20120917
  Receipt Date: 20130228
  Transmission Date: 20140127
  Serious: Yes (Death)
  Sender: FDA-Public Use
  Company Number: FR-GLAXOSMITHKLINE-B0830280A

PATIENT
  Age: 60 Year
  Sex: Female

DRUGS (2)
  1. TYVERB [Suspect]
     Indication: BREAST CANCER METASTATIC
     Dosage: 1250MG PER DAY
     Route: 048
     Dates: start: 20120723, end: 20120726
  2. XELODA [Suspect]
     Indication: BREAST CANCER METASTATIC
     Dosage: 1600MG TWICE PER DAY
     Route: 048
     Dates: start: 20120723, end: 20120726

REACTIONS (4)
  - Sudden death [Fatal]
  - Dyskinesia [Recovered/Resolved]
  - Nausea [Unknown]
  - Loss of consciousness [Unknown]
